FAERS Safety Report 14549473 (Version 2)
Quarter: 2018Q4

REPORT INFORMATION
  Report Type: Spontaneous
  Country: GB (occurrence: GB)
  Receive Date: 20180219
  Receipt Date: 20181224
  Transmission Date: 20190204
  Serious: Yes (Other)
  Sender: FDA-Public Use
  Company Number: GB-CONCORDIA PHARMACEUTICALS INC.-GSH201802-000632

PATIENT

DRUGS (1)
  1. HYDROXYCHLOROQUINE [Suspect]
     Active Substance: HYDROXYCHLOROQUINE
     Indication: SJOGREN^S SYNDROME
     Dosage: }1500 G ON VARYING DOSES OVER TIME, 200-400 MG DAILY
     Route: 065

REACTIONS (5)
  - Off label use [Unknown]
  - Retinal toxicity [Unknown]
  - Visual acuity reduced [Unknown]
  - Maculopathy [Unknown]
  - Visual field defect [Unknown]
